FAERS Safety Report 22595253 (Version 1)
Quarter: 2023Q2

REPORT INFORMATION
  Report Type: Spontaneous
  Country: US (occurrence: None)
  Receive Date: 20230612
  Receipt Date: 20230612
  Transmission Date: 20230722
  Serious: Yes (Hospitalization)
  Sender: FDA-Public Use
  Company Number: None

PATIENT
  Age: 39 Year
  Sex: Female

DRUGS (1)
  1. HUMIRA [Suspect]
     Active Substance: ADALIMUMAB
     Indication: Hidradenitis
     Dosage: 80MG OTHER SUBCUTANEOUS
     Route: 058
     Dates: start: 202305, end: 202306

REACTIONS (2)
  - Cardiac fibrillation [None]
  - Heart rate increased [None]

NARRATIVE: CASE EVENT DATE: 20230610
